FAERS Safety Report 7832387-1 (Version None)
Quarter: 2011Q4

REPORT INFORMATION
  Report Type: 
  Country: None (occurrence: None)
  Receive Date: 20111022
  Receipt Date: 20100803
  Transmission Date: 20120403
  Serious: No
  Sender: FDA-Public Use
  Company Number: US-BAYER-201029674NA

PATIENT
  Sex: Female

DRUGS (1)
  1. CIPROFLOXACIN [Suspect]
     Indication: EAR INFECTION
     Dosage: 500 MG, BID
     Route: 048
     Dates: start: 20100701, end: 20100730

REACTIONS (3)
  - DIZZINESS [None]
  - AGITATION [None]
  - NERVOUSNESS [None]
